FAERS Safety Report 12079990 (Version 4)
Quarter: 2017Q1

REPORT INFORMATION
  Report Type: Spontaneous
  Country: US (occurrence: US)
  Receive Date: 20160216
  Receipt Date: 20170328
  Transmission Date: 20170428
  Serious: No
  Sender: FDA-Public Use
  Company Number: US-ACTELION PHARMACEUTICALS US, INC.-A-US2015-116757

PATIENT
  Age: 41 Year
  Sex: Male
  Weight: 68.93 kg

DRUGS (3)
  1. ADCIRCA [Concomitant]
     Active Substance: TADALAFIL
  2. VELETRI [Suspect]
     Active Substance: EPOPROSTENOL
     Indication: PULMONARY HYPERTENSION
     Dosage: 25 NG/KG, PER MIN
     Route: 042
     Dates: start: 20150127
  3. VELETRI [Suspect]
     Active Substance: EPOPROSTENOL
     Dosage: 20 NG/KG, PER MIN
     Route: 042
     Dates: start: 20120810

REACTIONS (10)
  - Nasopharyngitis [Unknown]
  - Epistaxis [Unknown]
  - Influenza [Unknown]
  - Cough [Unknown]
  - Infection [Unknown]
  - Flushing [Unknown]
  - Pyrexia [Unknown]
  - Device connection issue [Unknown]
  - Rhinorrhoea [Unknown]
  - Pain in jaw [Unknown]
